FAERS Safety Report 25014895 (Version 1)
Quarter: 2025Q1

REPORT INFORMATION
  Report Type: Spontaneous
  Country: US (occurrence: US)
  Receive Date: 20250226
  Receipt Date: 20250226
  Transmission Date: 20250409
  Serious: No
  Sender: MERCK SHARP & DOHME LLC
  Company Number: US-009507513-2254970

PATIENT
  Sex: Female
  Weight: 35.38 kg

DRUGS (6)
  1. PEMBROLIZUMAB [Suspect]
     Active Substance: PEMBROLIZUMAB
     Indication: Renal cancer
  2. PEMBROLIZUMAB [Suspect]
     Active Substance: PEMBROLIZUMAB
     Indication: Renal cancer
  3. LENVIMA [Suspect]
     Active Substance: LENVATINIB
     Indication: Renal cancer
     Route: 048
  4. PREDNISONE [Concomitant]
     Active Substance: PREDNISONE
  5. LOSARTAN [Concomitant]
     Active Substance: LOSARTAN
  6. ATORVASTATIN [Concomitant]
     Active Substance: ATORVASTATIN

REACTIONS (6)
  - Hepatic enzyme increased [Unknown]
  - Vomiting [Unknown]
  - Hepatic enzyme increased [Unknown]
  - Nausea [Unknown]
  - Weight decreased [Unknown]
  - Feeding disorder [Unknown]

NARRATIVE: CASE EVENT DATE: 20250101
